FAERS Safety Report 8622192-0 (Version None)
Quarter: 2012Q3

REPORT INFORMATION
  Report Type: 
  Country: None (occurrence: None)
  Receive Date: 20120826
  Receipt Date: 20120821
  Transmission Date: 20120928
  Serious: Yes (Other)
  Sender: FDA-Public Use
  Company Number: US-AMGEN-USASP2012053121

PATIENT
  Sex: Female

DRUGS (4)
  1. EFFEXOR XR [Concomitant]
     Dosage: UNK
  2. ANTIDEPRESSANTS [Concomitant]
     Indication: DEPRESSION
     Dosage: UNK
  3. ANTIPSYCHOTICS [Concomitant]
     Indication: DEPRESSION
     Dosage: UNK
  4. PROLIA [Suspect]
     Indication: OSTEOPOROSIS POSTMENOPAUSAL
     Dosage: UNK

REACTIONS (4)
  - DEPRESSION [None]
  - MOOD SWINGS [None]
  - INSOMNIA [None]
  - VERTIGO [None]
